FAERS Safety Report 12161498 (Version 3)
Quarter: 2016Q2

REPORT INFORMATION
  Report Type: Spontaneous
  Country: US (occurrence: US)
  Receive Date: 20160309
  Receipt Date: 20160512
  Transmission Date: 20160815
  Serious: Yes (Other)
  Sender: FDA-Public Use
  Company Number: US-UCBSA-2016007997

PATIENT
  Age: 58 Year
  Sex: Female
  Weight: 52 kg

DRUGS (6)
  1. TRAZODONE [Concomitant]
     Active Substance: TRAZODONE HYDROCHLORIDE
     Indication: SLEEP DISORDER
     Dosage: 100 MG, ONCE DAILY (QD) (2 TABS AT BEDTIME)
     Route: 048
  2. CIMZIA [Suspect]
     Active Substance: CERTOLIZUMAB PEGOL
     Indication: RHEUMATOID ARTHRITIS
     Dosage: 400 MG, EV 2 WEEKS(QOW)
     Route: 058
     Dates: start: 20160211, end: 2016
  3. PREDNISONE. [Concomitant]
     Active Substance: PREDNISONE
     Indication: RHEUMATOID ARTHRITIS
     Dosage: 2 MG DAILY
     Route: 048
  4. MULTIVITAMIN [Concomitant]
     Active Substance: VITAMINS
     Indication: SUPPLEMENTATION THERAPY
     Dosage: 1 TAB DAILY
     Route: 048
  5. CALCIUM W/MAGNESIUM [Concomitant]
     Active Substance: CALCIUM\MAGNESIUM
     Indication: SUPPLEMENTATION THERAPY
     Dosage: UNK
     Route: 048
  6. GABAPENTIN. [Concomitant]
     Active Substance: GABAPENTIN
     Indication: FIBROMYALGIA
     Dosage: 500 MG, ONCE DAILY (QD) (BEDTIME)
     Route: 048

REACTIONS (2)
  - Tooth infection [Not Recovered/Not Resolved]
  - Herpes virus infection [Recovered/Resolved]

NARRATIVE: CASE EVENT DATE: 20160218
